FAERS Safety Report 4634416-5 (Version None)
Quarter: 2005Q2

REPORT INFORMATION
  Report Type: 
  Country: None (occurrence: None)
  Receive Date: 20050412
  Receipt Date: 20050330
  Transmission Date: 20051028
  Serious: Yes (Death)
  Sender: FDA-Public Use
  Company Number: 2005051964

PATIENT
  Age: 38 Year
  Sex: Female

DRUGS (4)
  1. GEODON [Suspect]
     Indication: SCHIZOPHRENIA, UNDIFFERENTIATED TYPE
     Dosage: 80 MG (40 MG , 2 IN 1 D), ORAL
     Route: 048
  2. FLUOXETINE HCL [Concomitant]
  3. TOPIRAMATE [Concomitant]
  4. LORAZEPAM [Concomitant]

REACTIONS (3)
  - OXYGEN SATURATION DECREASED [None]
  - RESPIRATORY ARREST [None]
  - SLEEP APNOEA SYNDROME [None]
